FAERS Safety Report 6355636-8 (Version None)
Quarter: 2009Q3

REPORT INFORMATION
  Report Type: 
  Country: None (occurrence: None)
  Receive Date: 20090910
  Receipt Date: 20090826
  Transmission Date: 20100115
  Serious: Yes (Hospitalization, Disabling, Congenital Anomaly)
  Sender: FDA-Public Use
  Company Number: AUR-APL-2009-00510

PATIENT
  Age: 1 Year
  Sex: Male
  Weight: 12.15 kg

DRUGS (1)
  1. CITALOPRAM HYDROBROMIDE [Suspect]
     Indication: DEPRESSION
     Dosage: 20MG, DAILY, TRANSPLACENT
     Route: 064

REACTIONS (1)
  - GASTRIC ULCER HAEMORRHAGE [None]
